FAERS Safety Report 7961308-6 (Version None)
Quarter: 2011Q4

REPORT INFORMATION
  Report Type: 
  Country: None (occurrence: None)
  Receive Date: 20111202
  Receipt Date: 20111118
  Transmission Date: 20120403
  Serious: Yes (Hospitalization)
  Sender: FDA-Public Use
  Company Number: IPC201111-003219

PATIENT

DRUGS (1)
  1. FUROSEMIDE [Suspect]
     Dosage: 40 MILLIGRAM

REACTIONS (1)
  - HYPERPHAGIA [None]
